FAERS Safety Report 8911529 (Version 1)
Quarter: 2012Q4

REPORT INFORMATION
  Report Type: 
  Country: CR (occurrence: CR)
  Receive Date: 20121115
  Receipt Date: 20121115
  Transmission Date: 20130627
  Serious: Yes (Hospitalization)
  Sender: FDA-Public Use
  Company Number: CR-ELI_LILLY_AND_COMPANY-CR201211001775

PATIENT
  Age: 21 Year
  Sex: Male

DRUGS (3)
  1. OLANZAPINE [Suspect]
     Indication: BIPOLAR I DISORDER
     Dosage: 10 mg, qd
  2. OLANZAPINE [Suspect]
     Dosage: 20 mg, UNK
  3. OLANZAPINE [Suspect]
     Dosage: 10 mg, UNK

REACTIONS (2)
  - Bipolar disorder [Unknown]
  - Neuralgia [Recovered/Resolved]
